FAERS Safety Report 5990072-5 (Version None)
Quarter: 2008Q4

REPORT INFORMATION
  Report Type: 
  Country: None (occurrence: None)
  Receive Date: 20081211
  Receipt Date: 20081204
  Transmission Date: 20090506
  Serious: Yes (Death, Other)
  Sender: FDA-Public Use
  Company Number: US-BRISTOL-MYERS SQUIBB COMPANY-14435838

PATIENT
  Age: 46 Year
  Sex: Male
  Weight: 94 kg

DRUGS (14)
  1. EFAVIRENZ [Suspect]
     Indication: HIV INFECTION
     Route: 048
     Dates: start: 20060419, end: 20080407
  2. TRUVADA [Suspect]
     Indication: HIV INFECTION
     Route: 048
     Dates: start: 20060419, end: 20080407
  3. EPZICOM [Suspect]
     Indication: HIV INFECTION
     Route: 048
     Dates: start: 20060419, end: 20080407
  4. AMBIEN [Concomitant]
  5. ATENOLOL [Concomitant]
  6. COMBIVENT [Concomitant]
  7. MIRTAZAPINE [Concomitant]
  8. SEROQUEL [Concomitant]
  9. SOMA [Concomitant]
  10. ULTRAM [Concomitant]
  11. VENTOLIN [Concomitant]
  12. VICODIN [Concomitant]
  13. ZANTAC [Concomitant]
  14. ZOLOFT [Concomitant]

REACTIONS (7)
  - BACK PAIN [None]
  - BLOOD ALCOHOL INCREASED [None]
  - CARDIAC DISORDER [None]
  - HYPERTENSIVE HEART DISEASE [None]
  - NO THERAPEUTIC RESPONSE [None]
  - OVERDOSE [None]
  - SUDDEN DEATH [None]
